FAERS Safety Report 26035991 (Version 1)
Quarter: 2025Q4

REPORT INFORMATION
  Report Type: Spontaneous
  Country: VE (occurrence: VE)
  Receive Date: 20251112
  Receipt Date: 20251112
  Transmission Date: 20260119
  Serious: Yes (Other)
  Sender: PFIZER
  Company Number: VE-PFIZER INC-PV202300164402

PATIENT
  Age: 62 Year
  Sex: Male

DRUGS (1)
  1. INLYTA [Suspect]
     Active Substance: AXITINIB
     Indication: Renal cell carcinoma
     Dosage: 10MG 2X/DAY (2 X 5MG TABLETS)

REACTIONS (6)
  - Second primary malignancy [Unknown]
  - Adenocarcinoma [Unknown]
  - Blood pressure abnormal [Unknown]
  - Speech disorder [Unknown]
  - Movement disorder [Unknown]
  - Dental discomfort [Unknown]
